FAERS Safety Report 9891467 (Version 4)
Quarter: 2014Q2

REPORT INFORMATION
  Report Type: Report from Study
  Country: CL (occurrence: CL)
  Receive Date: 20140212
  Receipt Date: 20140623
  Transmission Date: 20141212
  Serious: Yes (Hospitalization)
  Sender: FDA-Public Use
  Company Number: CL-ACTELION-A-CH2013-87405

PATIENT
  Age: 34 Year
  Sex: Male
  Weight: 100 kg

DRUGS (9)
  1. MACITENTAN [Suspect]
     Indication: PULMONARY ARTERIAL HYPERTENSION
     Dosage: 10 MG, QD
     Route: 048
     Dates: start: 20101110
  2. SILDENAFIL [Concomitant]
     Dosage: 25 MG, TID
     Route: 048
     Dates: start: 200903
  3. ACENOCUMAROL [Concomitant]
     Dosage: 2 MG, UNK
     Route: 048
     Dates: start: 20100420
  4. DIGOXINE [Concomitant]
     Dosage: UNK
     Dates: start: 200707
  5. FUROSEMIDE [Concomitant]
     Dosage: 40 MG, BID
     Route: 048
     Dates: start: 200707
  6. SPIRONOLACTONE [Concomitant]
     Dosage: 25 MG, QD
     Route: 048
     Dates: start: 200707
  7. RANITIDINE [Concomitant]
     Dosage: UNK
     Dates: start: 200707
  8. METFORMIN [Concomitant]
     Dosage: UNK
     Dates: start: 201201
  9. SERTRALINE [Concomitant]
     Dosage: UNK
     Dates: start: 201210

REACTIONS (15)
  - Confusional state [Recovered/Resolved]
  - Hepatic encephalopathy [Recovered/Resolved with Sequelae]
  - Liver disorder [Not Recovered/Not Resolved]
  - Cardiomegaly [Unknown]
  - Somnolence [Recovered/Resolved]
  - Disorientation [Recovered/Resolved]
  - Bradyphrenia [Recovered/Resolved with Sequelae]
  - Telangiectasia [Recovered/Resolved with Sequelae]
  - Palmar erythema [Recovered/Resolved with Sequelae]
  - Hepatomegaly [Recovered/Resolved with Sequelae]
  - Portal hypertension [Recovered/Resolved with Sequelae]
  - Blood bilirubin increased [Recovered/Resolved with Sequelae]
  - Ammonia increased [Recovered/Resolved with Sequelae]
  - Cholestasis [Recovered/Resolved with Sequelae]
  - Ascites [Recovered/Resolved with Sequelae]
